FAERS Safety Report 23330918 (Version 1)
Quarter: 2023Q4

REPORT INFORMATION
  Report Type: Spontaneous
  Country: CN (occurrence: CN)
  Receive Date: 20231222
  Receipt Date: 20231222
  Transmission Date: 20240110
  Serious: Yes (Death, Hospitalization, Other)
  Sender: FDA-Public Use
  Company Number: CN-SA-2023SA394300

PATIENT
  Age: 64 Year
  Sex: Female

DRUGS (8)
  1. DOCETAXEL [Suspect]
     Active Substance: DOCETAXEL\DOCETAXEL ANHYDROUS
     Indication: Invasive ductal breast carcinoma
     Dosage: 140 MG
     Dates: start: 2021, end: 2021
  2. EPIRUBICIN [Suspect]
     Active Substance: EPIRUBICIN
     Indication: Invasive ductal breast carcinoma
     Dosage: 130 MG, QCY
     Dates: start: 20210902, end: 2021
  3. CYCLOPHOSPHAMIDE [Suspect]
     Active Substance: CYCLOPHOSPHAMIDE
     Indication: Invasive ductal breast carcinoma
     Dosage: 0.8 G, QCY
     Dates: start: 2021, end: 2021
  4. DOXORUBICIN HYDROCHLORIDE [Suspect]
     Active Substance: DOXORUBICIN HYDROCHLORIDE
     Indication: Invasive ductal breast carcinoma
     Dosage: 55 MG, QCY
     Dates: start: 2021, end: 2021
  5. METHYLPREDNISOLONE SODIUM SUCCINATE [Suspect]
     Active Substance: METHYLPREDNISOLONE SODIUM SUCCINATE
     Indication: Gastrointestinal disorder therapy
     Dosage: 250 MG, QD
     Route: 041
     Dates: start: 2021, end: 2021
  6. METHYLPREDNISOLONE SODIUM SUCCINATE [Suspect]
     Active Substance: METHYLPREDNISOLONE SODIUM SUCCINATE
     Indication: Gastrointestinal disorder prophylaxis
     Dosage: 80 MG, QD
     Dates: start: 20211208, end: 20211210
  7. METHYLPREDNISOLONE SODIUM SUCCINATE [Suspect]
     Active Substance: METHYLPREDNISOLONE SODIUM SUCCINATE
     Dosage: 40 MG, QD
     Dates: start: 20211211, end: 20211213
  8. GRANULOCYTE COLONY-STIMULATING FACTOR NOS [Concomitant]
     Active Substance: GRANULOCYTE COLONY-STIMULATING FACTOR NOS
     Dosage: UNK
     Dates: start: 20211120

REACTIONS (32)
  - Multiple organ dysfunction syndrome [Fatal]
  - Septic shock [Fatal]
  - Respiratory failure [Fatal]
  - Hypercapnia [Fatal]
  - Gastrointestinal haemorrhage [Fatal]
  - Deep vein thrombosis [Fatal]
  - Hypoproteinaemia [Fatal]
  - Acute kidney injury [Fatal]
  - Renal impairment [Fatal]
  - Micturition urgency [Fatal]
  - Pollakiuria [Fatal]
  - Dysuria [Fatal]
  - Hypokalaemia [Fatal]
  - Hyperglycaemia [Fatal]
  - Sepsis [Fatal]
  - Respiratory failure [Fatal]
  - Acute respiratory distress syndrome [Fatal]
  - Productive cough [Fatal]
  - Dyspnoea [Fatal]
  - Cyanosis [Fatal]
  - Pneumocystis jirovecii pneumonia [Fatal]
  - Asthenia [Fatal]
  - Pyrexia [Fatal]
  - Abdominal pain [Fatal]
  - Diarrhoea [Fatal]
  - Apathy [Fatal]
  - Livedo reticularis [Fatal]
  - Peripheral coldness [Fatal]
  - Decreased appetite [Fatal]
  - Pneumocystis jirovecii infection [Fatal]
  - Pseudomonas infection [Fatal]
  - Gastrointestinal disorder [Unknown]

NARRATIVE: CASE EVENT DATE: 20210101
